FAERS Safety Report 8216111-9 (Version None)
Quarter: 2012Q1

REPORT INFORMATION
  Report Type: 
  Country: None (occurrence: None)
  Receive Date: 20120316
  Receipt Date: 20120307
  Transmission Date: 20120608
  Serious: No
  Sender: FDA-Public Use
  Company Number: US-PFIZER INC-2012060137

PATIENT
  Weight: 64.9 kg

DRUGS (1)
  1. AXITINIB [Suspect]
     Indication: METASTATIC MALIGNANT MELANOMA
     Dosage: 3 MG, 2X/DAY
     Route: 048
     Dates: start: 20110816

REACTIONS (1)
  - ADVERSE EVENT [None]
